FAERS Safety Report 4509773-0 (Version None)
Quarter: 2004Q4

REPORT INFORMATION
  Report Type: 
  Country: None (occurrence: None)
  Receive Date: 20041124
  Receipt Date: 20040225
  Transmission Date: 20050328
  Serious: No
  Sender: FDA-Public Use
  Company Number: US-BRISTOL-MYERS SQUIBB COMPANY-12516852

PATIENT
  Age: 77 Year
  Sex: Female

DRUGS (2)
  1. AVALIDE [Suspect]
     Dosage: DOSAGE, REPORTED AS ^10 MG,^ RECEIVED ^SOMETIME LAST WEEK^
     Route: 048
     Dates: start: 20040201, end: 20040201
  2. ATENOLOL [Concomitant]

REACTIONS (1)
  - RASH [None]
